FAERS Safety Report 15278626 (Version 10)
Quarter: 2019Q4

REPORT INFORMATION
  Report Type: Report from Study
  Country: IN (occurrence: IN)
  Receive Date: 20180815
  Receipt Date: 20191217
  Transmission Date: 20200122
  Serious: Yes (Hospitalization)
  Sender: FDA-Public Use
  Company Number: PHHO2018IN009039

PATIENT
  Age: 35 Year
  Sex: Male
  Weight: 75 kg

DRUGS (9)
  1. SIGNOFLAM [Concomitant]
     Indication: PROPHYLAXIS
     Dosage: 100 M, BID
     Route: 048
     Dates: start: 20180822
  2. OFATUMUMAB [Suspect]
     Active Substance: OFATUMUMAB
     Dosage: 14 MG, QD
     Route: 048
     Dates: start: 20171010
  3. FRITOLEV [Concomitant]
     Indication: SEIZURE
     Dosage: 500 MG, BID
     Route: 048
     Dates: start: 201503
  4. AUGMENTIN [Concomitant]
     Active Substance: AMOXICILLIN\CLAVULANATE POTASSIUM
     Indication: PRODUCT USED FOR UNKNOWN INDICATION
     Dosage: 625 MG, ONCE/SINGLE
     Route: 048
     Dates: start: 20150731
  5. CRANBERRY. [Concomitant]
     Active Substance: CRANBERRY
     Indication: PROPHYLAXIS URINARY TRACT INFECTION
     Dosage: 300 MG, QD
     Route: 048
     Dates: start: 201602
  6. CALCIROL [Concomitant]
     Indication: VITAMIN SUPPLEMENTATION
     Dosage: 1 G, QMO
     Route: 048
     Dates: start: 201703
  7. COVATIL [Concomitant]
     Indication: ANTIBIOTIC THERAPY
     Dosage: 500 MG, BID
     Route: 048
     Dates: start: 20180822
  8. OFATUMUMAB [Suspect]
     Active Substance: OFATUMUMAB
     Indication: RELAPSING MULTIPLE SCLEROSIS
     Dosage: 20 MG, Q4W
     Route: 058
     Dates: start: 20171010
  9. SHELCAL [Concomitant]
     Active Substance: CALCIUM CARBONATE\CHOLECALCIFEROL
     Indication: MINERAL SUPPLEMENTATION
     Dosage: 500 MG, QD
     Route: 048
     Dates: start: 201602

REACTIONS (1)
  - Urosepsis [Recovered/Resolved]

NARRATIVE: CASE EVENT DATE: 20180801
